FAERS Safety Report 12334487 (Version 2)
Quarter: 2016Q2

REPORT INFORMATION
  Report Type: Spontaneous
  Country: US (occurrence: US)
  Receive Date: 20160504
  Receipt Date: 20160523
  Transmission Date: 20160815
  Serious: Yes (Other)
  Sender: FDA-Public Use
  Company Number: US-BAXALTA-2016BLT002750

PATIENT
  Age: 30 Year
  Sex: Male
  Weight: 74.83 kg

DRUGS (1)
  1. GAMMAGARD LIQUID [Suspect]
     Active Substance: HUMAN IMMUNOGLOBULIN G
     Indication: NERVOUS SYSTEM DISORDER
     Dosage: 50 G, 1X A DAY
     Route: 042
     Dates: start: 20160411, end: 20160413

REACTIONS (4)
  - Dyspnoea [Unknown]
  - Haemolytic anaemia [Recovering/Resolving]
  - Tachycardia [Unknown]
  - Fatigue [Unknown]

NARRATIVE: CASE EVENT DATE: 20160417
